FAERS Safety Report 5093523-6 (Version None)
Quarter: 2006Q3

REPORT INFORMATION
  Report Type: 
  Country: None (occurrence: None)
  Receive Date: 20060829
  Receipt Date: 20060811
  Transmission Date: 20061208
  Serious: Yes (Other)
  Sender: FDA-Public Use
  Company Number: PAR_0768_2006

PATIENT
  Age: 48 Year
  Sex: Female

DRUGS (1)
  1. HYDRALAZINE HCL [Suspect]
     Dosage: DF

REACTIONS (2)
  - HAEMOPTYSIS [None]
  - LUPUS PNEUMONITIS [None]
